FAERS Safety Report 7768898-7 (Version None)
Quarter: 2011Q3

REPORT INFORMATION
  Report Type: 
  Country: None (occurrence: None)
  Receive Date: 20110922
  Receipt Date: 20110310
  Transmission Date: 20111222
  Serious: Yes (Other)
  Sender: FDA-Public Use
  Company Number: US-ASTRAZENECA-2010SE33369

PATIENT
  Age: 52 Year
  Sex: Female
  Weight: 86.2 kg

DRUGS (8)
  1. MIRAPEX [Concomitant]
     Indication: RESTLESS LEGS SYNDROME
     Route: 048
  2. SEROQUEL [Suspect]
     Indication: DEPRESSION
     Route: 048
     Dates: start: 20100901, end: 20110309
  3. RESTERIL [Concomitant]
     Route: 048
  4. FLEXERIL [Concomitant]
     Indication: BACK PAIN
     Dosage: AS REQUIRED
     Route: 048
  5. HYDROCHLOROTHIAZIDE [Concomitant]
     Indication: HYPERTENSION
     Dosage: DAILY
     Route: 048
  6. NEWVIGIL [Concomitant]
     Route: 048
  7. SEROQUEL [Suspect]
     Route: 048
  8. CINEMET [Concomitant]
     Indication: RESTLESS LEGS SYNDROME
     Route: 048

REACTIONS (10)
  - GASTRIC DISORDER [None]
  - IRRITABILITY [None]
  - AGGRESSION [None]
  - WRONG DRUG ADMINISTERED [None]
  - INCORRECT DOSE ADMINISTERED [None]
  - NAUSEA [None]
  - HEADACHE [None]
  - DRUG DOSE OMISSION [None]
  - INSOMNIA [None]
  - SUICIDAL IDEATION [None]
